FAERS Safety Report 5234466-4 (Version None)
Quarter: 2007Q1

REPORT INFORMATION
  Report Type: 
  Country: None (occurrence: None)
  Receive Date: 20070209
  Receipt Date: 20070206
  Transmission Date: 20070707
  Serious: Yes (Other)
  Sender: FDA-Public Use
  Company Number: FR-GLAXOSMITHKLINE-B0457580A

PATIENT

DRUGS (1)
  1. CLAMOXYL [Suspect]
     Route: 065

REACTIONS (1)
  - ENCEPHALOPATHY [None]
